FAERS Safety Report 15549517 (Version 2)
Quarter: 2019Q1

REPORT INFORMATION
  Report Type: Spontaneous
  Country: US (occurrence: US)
  Receive Date: 20181025
  Receipt Date: 20190328
  Transmission Date: 20190417
  Serious: No
  Sender: FDA-Public Use
  Company Number: US-PFIZER INC-2018428676

PATIENT
  Age: 63 Year
  Sex: Female
  Weight: 67.13 kg

DRUGS (3)
  1. GABAPENTIN. [Suspect]
     Active Substance: GABAPENTIN
     Dosage: 3 DF, DAILY (UP TO 3 CAPSULES DAILY)
     Route: 048
  2. GABAPENTIN. [Suspect]
     Active Substance: GABAPENTIN
     Indication: BURNING MOUTH SYNDROME
     Dosage: 100 MG, DAILY (ONE 100 MG CAPSULE DAILY)
     Route: 048
     Dates: start: 2018
  3. GABAPENTIN. [Suspect]
     Active Substance: GABAPENTIN
     Dosage: 100 MG, 2X/DAY (ONE 100MG CAPSULE IN THE MORNING, AND ONE 100MG CAPSULE AT NIGHT)
     Route: 048

REACTIONS (1)
  - Drug ineffective for unapproved indication [Unknown]
